FAERS Safety Report 9015334 (Version 1)
Quarter: 2013Q1

REPORT INFORMATION
  Report Type: Spontaneous
  Country: US (occurrence: None)
  Receive Date: 20130109
  Receipt Date: 20130109
  Transmission Date: 20140127
  Serious: No
  Sender: FDA-Public Use
  Company Number: None

PATIENT
  Age: 75 Year
  Sex: Female
  Weight: 50.8 kg

DRUGS (1)
  1. RECLAST [Suspect]
     Dosage: 5MG ONE TIME IV
     Route: 042
     Dates: start: 20120308

REACTIONS (2)
  - Oxygen consumption increased [None]
  - Condition aggravated [None]
